FAERS Safety Report 6642957-4 (Version None)
Quarter: 2010Q1

REPORT INFORMATION
  Report Type: 
  Country: None (occurrence: None)
  Receive Date: 20100319
  Receipt Date: 20100308
  Transmission Date: 20100710
  Serious: Yes (Other)
  Sender: FDA-Public Use
  Company Number: US-PFIZER INC-2010015630

PATIENT
  Sex: Female
  Weight: 62.585 kg

DRUGS (9)
  1. ZOLOFT [Suspect]
     Indication: SLEEP DISORDER
     Dosage: 25 MG, 1X/DAY
     Dates: start: 20100129, end: 20100202
  2. ZOLOFT [Suspect]
     Indication: DECREASED ACTIVITY
  3. FUROSEMIDE [Concomitant]
     Dosage: UNK
  4. POTASSIUM [Concomitant]
     Dosage: UNK
  5. IMDUR [Concomitant]
     Indication: HYPERTENSION
     Dosage: UNK
  6. IMDUR [Concomitant]
     Indication: ATRIAL FIBRILLATION
  7. ACETYLSALICYLIC ACID [Concomitant]
     Dosage: 325 MG
  8. FAMOTIDINE [Concomitant]
     Dosage: UNK
  9. VITAMIN D3 [Concomitant]
     Dosage: UNK

REACTIONS (4)
  - CONFUSIONAL STATE [None]
  - DECREASED APPETITE [None]
  - DISORIENTATION [None]
  - FEAR [None]
